FAERS Safety Report 6166925-4 (Version None)
Quarter: 2009Q2

REPORT INFORMATION
  Report Type: 
  Country: None (occurrence: None)
  Receive Date: 20090424
  Receipt Date: 20090417
  Transmission Date: 20091009
  Serious: Yes (Hospitalization)
  Sender: FDA-Public Use
  Company Number: CH-BAYER-200918545GPV

PATIENT
  Age: 76 Year
  Sex: Male

DRUGS (7)
  1. CIPROFLOXACIN HCL [Suspect]
     Indication: PANCREATITIS
     Route: 048
     Dates: start: 20090131, end: 20090208
  2. CIPROFLOXACIN HCL [Suspect]
     Route: 048
     Dates: start: 20090113, end: 20090127
  3. PIPERACILLIN AND TAZOBACTAM [Suspect]
     Indication: PANCREATITIS
     Route: 051
     Dates: start: 20090128, end: 20090130
  4. PIPERACILLIN AND TAZOBACTAM [Suspect]
     Route: 051
     Dates: start: 20090107, end: 20090113
  5. FLAGYL [Suspect]
     Indication: PANCREATITIS
     Route: 048
     Dates: start: 20090131, end: 20090208
  6. FLAGYL [Suspect]
     Route: 051
     Dates: start: 20090128, end: 20090130
  7. ROCEPHIN [Suspect]
     Indication: PANCREATITIS
     Route: 051
     Dates: start: 20090127, end: 20090127

REACTIONS (3)
  - AGRANULOCYTOSIS [None]
  - PYREXIA [None]
  - SEPSIS [None]
